FAERS Safety Report 19849811 (Version 1)
Quarter: 2021Q3

REPORT INFORMATION
  Report Type: Spontaneous
  Country: RU (occurrence: RU)
  Receive Date: 20210917
  Receipt Date: 20210917
  Transmission Date: 20211014
  Serious: Yes (Other)
  Sender: FDA-Public Use
  Company Number: RU-ASTRAZENECA-2021A727199

PATIENT
  Age: 37 Year
  Sex: Female

DRUGS (4)
  1. MONTELUCAST [Concomitant]
     Active Substance: MONTELUKAST SODIUM
  2. BUDESONIDE/FORMOTEROL [Suspect]
     Active Substance: BUDESONIDE\FORMOTEROL
     Indication: ASTHMA
     Dosage: 160/4.5 MCG 1 INHALATIONS 2 TIMES A DAY
     Route: 055
     Dates: start: 2013
  3. MOMETASONE FUROATE. [Concomitant]
     Active Substance: MOMETASONE FUROATE
  4. BUDESONIDE/FORMOTEROL [Suspect]
     Active Substance: BUDESONIDE\FORMOTEROL
     Indication: ASTHMA
     Dosage: 160/4.5 MCG 2 INHALATIONS 2 TIMES A DAY
     Route: 055

REACTIONS (10)
  - Rhinitis [Recovering/Resolving]
  - Conjunctivitis [Recovering/Resolving]
  - Dyspnoea [Recovering/Resolving]
  - Drug ineffective [Recovering/Resolving]
  - Condition aggravated [Recovering/Resolving]
  - Anosmia [Recovering/Resolving]
  - Sinusitis [Recovering/Resolving]
  - Rhinitis allergic [Recovering/Resolving]
  - Asphyxia [Recovering/Resolving]
  - Headache [Recovering/Resolving]
